FAERS Safety Report 13515127 (Version 1)
Quarter: 2017Q2

REPORT INFORMATION
  Report Type: Spontaneous
  Country: JP (occurrence: JP)
  Receive Date: 20170504
  Receipt Date: 20170504
  Transmission Date: 20170830
  Serious: Yes (Other)
  Sender: FDA-Public Use
  Company Number: JP-BAYER-2017-080370

PATIENT
  Age: 74 Year
  Sex: Male
  Weight: 72.5 kg

DRUGS (9)
  1. PREDNISOLONE. [Suspect]
     Active Substance: PREDNISOLONE
     Dosage: 5 MG, BID
  2. LANSOPRAZOLE. [Suspect]
     Active Substance: LANSOPRAZOLE
     Dosage: 30 MG, QD
  3. MUCODYNE [Suspect]
     Active Substance: CARBOCYSTEINE
     Dosage: 500 MG, TID
     Route: 048
  4. VFEND [Suspect]
     Active Substance: VORICONAZOLE
     Indication: CRYPTOCOCCOSIS
     Dosage: 100 MG, BID
     Route: 048
     Dates: start: 20120613
  5. BACTRAMIN [Suspect]
     Active Substance: SULFAMETHOXAZOLE\TRIMETHOPRIM
     Dosage: 1 G, BID
  6. VORICONAZOLE. [Suspect]
     Active Substance: VORICONAZOLE
     Indication: PROPHYLAXIS
     Dosage: 100 MG, BID
     Route: 050
     Dates: start: 20170125
  7. ACETYLSALICYLIC ACID({=100 MG) [Suspect]
     Active Substance: ASPIRIN
     Dosage: 100 MG, QD
     Route: 048
  8. VORICONAZOLE. [Suspect]
     Active Substance: VORICONAZOLE
     Indication: PROPHYLAXIS
     Dosage: 200 MG, BID
     Route: 050
     Dates: end: 20170125
  9. SYMMETREL [Suspect]
     Active Substance: AMANTADINE HYDROCHLORIDE
     Dosage: 50 MG, BID
     Route: 048

REACTIONS (5)
  - Cerebral infarction [Unknown]
  - Hepatic function abnormal [Not Recovered/Not Resolved]
  - Drug level decreased [None]
  - Pneumonia [Unknown]
  - Product use issue [None]

NARRATIVE: CASE EVENT DATE: 201612
